FAERS Safety Report 24635924 (Version 2)
Quarter: 2024Q4

REPORT INFORMATION
  Report Type: Report from Study
  Country: TW (occurrence: TW)
  Receive Date: 20241119
  Receipt Date: 20241127
  Transmission Date: 20250115
  Serious: Yes (Other)
  Sender: ABBVIE
  Company Number: TW-ABBVIE-6006241

PATIENT
  Age: 48 Year
  Sex: Female
  Weight: 70 kg

DRUGS (3)
  1. RINVOQ [Suspect]
     Active Substance: UPADACITINIB
     Indication: Psoriatic arthropathy
     Route: 048
     Dates: start: 20240403
  2. ARHEUMA [Concomitant]
     Indication: Psoriatic arthropathy
     Route: 048
     Dates: start: 20201020
  3. SULFASALAZINE [Concomitant]
     Active Substance: SULFASALAZINE
     Indication: Psoriatic arthropathy
     Route: 048
     Dates: start: 20220310

REACTIONS (5)
  - Liver function test increased [Unknown]
  - Heavy menstrual bleeding [Unknown]
  - Insomnia [Unknown]
  - Fatigue [Unknown]
  - Somnolence [Unknown]

NARRATIVE: CASE EVENT DATE: 20240101
